FAERS Safety Report 10738954 (Version 2)
Quarter: 2015Q1

REPORT INFORMATION
  Report Type: Spontaneous
  Country: US (occurrence: US)
  Receive Date: 20150126
  Receipt Date: 20150310
  Transmission Date: 20150721
  Serious: Yes (Other)
  Sender: FDA-Public Use
  Company Number: US-ELI_LILLY_AND_COMPANY-US201501005176

PATIENT
  Sex: Female

DRUGS (7)
  1. MECLIZINE [Concomitant]
     Active Substance: MECLIZINE\MECLIZINE HYDROCHLORIDE
     Indication: MOOD ALTERED
     Dosage: UNK
     Route: 065
     Dates: start: 20150114
  2. HUMULIN N [Suspect]
     Active Substance: INSULIN HUMAN
     Dosage: 5 U, EACH EVENING
     Route: 065
     Dates: start: 2011
  3. INSULIN HUMAN [Suspect]
     Active Substance: INSULIN HUMAN
     Dosage: 24 U, QD
     Route: 065
     Dates: start: 20150113, end: 20150113
  4. INSULIN HUMAN [Suspect]
     Active Substance: INSULIN HUMAN
     Dosage: 4 U, OTHER
     Route: 065
     Dates: start: 20150114
  5. HUMULIN N [Suspect]
     Active Substance: INSULIN HUMAN
     Indication: TYPE 1 DIABETES MELLITUS
     Dosage: 4 U, EACH MORNING
     Route: 065
     Dates: start: 2011
  6. INSULIN HUMAN [Suspect]
     Active Substance: INSULIN HUMAN
     Indication: TYPE 1 DIABETES MELLITUS
     Dosage: 3 U, OTHER
     Route: 065
     Dates: start: 2011
  7. ENALAPRIL MALEATE. [Concomitant]
     Active Substance: ENALAPRIL MALEATE
     Indication: HYPERTENSION
     Dosage: UNK
     Route: 065
     Dates: start: 20150114

REACTIONS (7)
  - Shock hypoglycaemic [Unknown]
  - Retinal detachment [Unknown]
  - Diabetic retinopathy [Unknown]
  - Blood glucose increased [Unknown]
  - Drug ineffective [Unknown]
  - Incorrect product storage [Unknown]
  - Lacrimation increased [Not Recovered/Not Resolved]
